FAERS Safety Report 8854331 (Version 1)
Quarter: 2012Q4

REPORT INFORMATION
  Report Type: Spontaneous
  Country: US (occurrence: None)
  Receive Date: 20121019
  Receipt Date: 20121019
  Transmission Date: 20130627
  Serious: Yes (Other)
  Sender: FDA-Public Use
  Company Number: ALK-2012-000956

PATIENT
  Age: 52 Year
  Sex: Female

DRUGS (1)
  1. VIVITROL (VIVITROL_NDA) INJECTION, 380MG [Suspect]
     Indication: DRUG USE FOR UNKNOWN INDICATION
     Dosage: 380 mg, UNK, Intramuscular
     Route: 030

REACTIONS (3)
  - Injection site reaction [None]
  - Injection site induration [None]
  - Injection site mass [None]
